FAERS Safety Report 6520179-5 (Version None)
Quarter: 2009Q4

REPORT INFORMATION
  Report Type: 
  Country: None (occurrence: None)
  Receive Date: 20091229
  Receipt Date: 20091217
  Transmission Date: 20100525
  Serious: Yes (Hospitalization, Other)
  Sender: FDA-Public Use
  Company Number: FR-JNJFOC-20081104267

PATIENT
  Age: 17 Year
  Sex: Female
  Weight: 41 kg

DRUGS (6)
  1. REMICADE [Suspect]
     Route: 042
  2. REMICADE [Suspect]
     Route: 042
  3. REMICADE [Suspect]
     Dosage: 3 INFUSIONS ON UNSPECIFIED DATES
     Route: 042
  4. REMICADE [Suspect]
     Indication: CROHN'S DISEASE
     Route: 042
  5. OMEPRAZOLE [Concomitant]
  6. CORTANCYL [Concomitant]

REACTIONS (3)
  - CROHN'S DISEASE [None]
  - PANCREATITIS ACUTE [None]
  - PERICARDITIS TUBERCULOUS [None]
